FAERS Safety Report 21322864 (Version 2)
Quarter: 2023Q2

REPORT INFORMATION
  Report Type: Report from Study
  Country: CA (occurrence: CA)
  Receive Date: 20220912
  Receipt Date: 20230407
  Transmission Date: 20230721
  Serious: Yes (Other)
  Sender: FDA-Public Use
  Company Number: CA-ABBVIE-22K-028-4522927-00

PATIENT
  Age: 43 Year
  Sex: Male

DRUGS (11)
  1. SKYRIZI [Suspect]
     Active Substance: RISANKIZUMAB-RZAA
     Indication: Psoriasis
     Route: 058
     Dates: start: 20200127, end: 20200224
  2. SKYRIZI [Suspect]
     Active Substance: RISANKIZUMAB-RZAA
     Route: 058
     Dates: start: 20200224
  3. ACETAMINOPHEN\TRAMADOL [Concomitant]
     Active Substance: ACETAMINOPHEN\TRAMADOL
     Indication: Limb injury
     Route: 048
     Dates: start: 20220807
  4. ASPIRIN [Concomitant]
     Active Substance: ASPIRIN
     Indication: Joint injury
     Route: 048
     Dates: start: 20220807
  5. BETAMETHASONE\CALCIPOTRIENE [Concomitant]
     Active Substance: BETAMETHASONE\CALCIPOTRIENE
     Indication: Psoriasis
     Dosage: 1 APPLICATION
     Route: 061
     Dates: start: 20170405, end: 20200224
  6. ZOPICLONE [Concomitant]
     Active Substance: ZOPICLONE
     Indication: Insomnia
     Dosage: EVERY NIGHT AT BEDTIME
     Route: 048
     Dates: start: 2015
  7. NAPROXEN [Concomitant]
     Active Substance: NAPROXEN
     Indication: Limb injury
     Route: 048
     Dates: start: 20220516, end: 20220526
  8. NAPROXEN [Concomitant]
     Active Substance: NAPROXEN
     Indication: Limb injury
     Route: 048
     Dates: start: 20220516, end: 20220526
  9. FLOVENT [Concomitant]
     Active Substance: FLUTICASONE PROPIONATE
     Indication: Pneumonia
     Route: 048
     Dates: start: 20221120, end: 20221127
  10. VENTOLIN [Concomitant]
     Active Substance: ALBUTEROL SULFATE
     Indication: Pneumonia
     Dates: start: 20221120, end: 20221127
  11. DOXYCYCLINE [Concomitant]
     Active Substance: DOXYCYCLINE
     Indication: Pneumonia
     Route: 048
     Dates: start: 20221117, end: 20221127

REACTIONS (1)
  - Joint injury [Recovered/Resolved]

NARRATIVE: CASE EVENT DATE: 20220806
